FAERS Safety Report 23597241 (Version 1)
Quarter: 2024Q1

REPORT INFORMATION
  Report Type: Spontaneous
  Country: CN (occurrence: CN)
  Receive Date: 20240305
  Receipt Date: 20240305
  Transmission Date: 20240410
  Serious: Yes (Other)
  Sender: FDA-Public Use
  Company Number: CN-ELI_LILLY_AND_COMPANY-CN202402013928

PATIENT
  Age: 16 Year
  Sex: Female
  Weight: 46 kg

DRUGS (2)
  1. FLUOXETINE HYDROCHLORIDE [Suspect]
     Active Substance: FLUOXETINE HYDROCHLORIDE
     Indication: Intentional self-injury
     Dosage: 12 DOSAGE FORM, SINGLE
     Route: 048
     Dates: start: 20231225, end: 20231225
  2. OXAZEPAM [Suspect]
     Active Substance: OXAZEPAM
     Indication: Intentional self-injury
     Dosage: 10 DOSAGE FORM, SINGLE
     Route: 048
     Dates: start: 20231225, end: 20231225

REACTIONS (3)
  - Toxicity to various agents [Recovering/Resolving]
  - Gastritis [Recovering/Resolving]
  - Intentional overdose [Recovering/Resolving]

NARRATIVE: CASE EVENT DATE: 20231225
